FAERS Safety Report 6591414-2 (Version None)
Quarter: 2010Q1

REPORT INFORMATION
  Report Type: 
  Country: None (occurrence: None)
  Receive Date: 20100219
  Receipt Date: 20100211
  Transmission Date: 20100710
  Serious: Yes (Hospitalization)
  Sender: FDA-Public Use
  Company Number: SE-AMGEN-KDL389561

PATIENT
  Age: 79 Year
  Sex: Female
  Weight: 91 kg

DRUGS (8)
  1. NPLATE [Suspect]
     Indication: IDIOPATHIC THROMBOCYTOPENIC PURPURA
     Route: 058
     Dates: start: 20091217, end: 20091223
  2. DELTISON [Concomitant]
     Route: 048
     Dates: start: 20091204, end: 20100104
  3. OMEPRAZOLE [Concomitant]
     Route: 048
     Dates: start: 20081204
  4. SIMVASTATIN [Concomitant]
     Route: 048
     Dates: start: 20081206
  5. ENALAPRIL MALEATE [Concomitant]
     Route: 048
     Dates: start: 20081206
  6. UNSPECIFIED MEDICATION [Concomitant]
     Route: 048
     Dates: start: 20090305
  7. FOSAMAX [Concomitant]
     Route: 048
     Dates: start: 20090305
  8. RITUXIMAB [Concomitant]
     Dates: start: 20090730

REACTIONS (2)
  - DEEP VEIN THROMBOSIS [None]
  - FALL [None]
